FAERS Safety Report 8241238 (Version 3)
Quarter: 2012Q4

REPORT INFORMATION
  Report Type: Report from Study
  Country: FR (occurrence: FR)
  Receive Date: 20111111
  Receipt Date: 20120917
  Transmission Date: 20130627
  Serious: Yes (Hospitalization)
  Sender: FDA-Public Use
  Company Number: FR-MILLENNIUM PHARMACEUTICALS, INC.-2011-05318

PATIENT
  Age: 61 Year
  Sex: Male

DRUGS (4)
  1. VELCADE [Suspect]
     Indication: MULTIPLE MYELOMA
     Route: 065
  2. DOXORUBICIN [Suspect]
     Indication: MULTIPLE MYELOMA
     Dosage: 9 mg/m2, UNK
  3. DEXAMETHASONE [Suspect]
     Indication: MULTIPLE MYELOMA
     Dosage: 40 mg, UNK
  4. VINCRISTINE [Suspect]
     Indication: MULTIPLE MYELOMA
     Dosage: 1 mg, UNK

REACTIONS (1)
  - Hospitalisation [Recovered/Resolved]
